FAERS Safety Report 19499856 (Version 1)
Quarter: 2021Q3

REPORT INFORMATION
  Report Type: Spontaneous
  Country: DE (occurrence: DE)
  Receive Date: 20210707
  Receipt Date: 20210707
  Transmission Date: 20211014
  Serious: Yes (Hospitalization)
  Sender: FDA-Public Use
  Company Number: DE-TEVA-2021-DE-1929499

PATIENT
  Age: 30 Year
  Sex: Female
  Weight: 79 kg

DRUGS (12)
  1. VINCRISTIN [Suspect]
     Active Substance: VINCRISTINE
     Dosage: ACCORDING TO THE SCHEME
  2. ACICLOVIR [Concomitant]
     Active Substance: ACYCLOVIR
     Dosage: 6 DOSAGE FORMS DAILY; 200 MG, 2?2?2?0
     Route: 048
  3. BLEOMYCIN [Suspect]
     Active Substance: BLEOMYCIN SULFATE
     Dosage: ACCORDING TO THE SCHEME
  4. PREDNISON [Suspect]
     Active Substance: PREDNISONE
     Dosage: ACCORDING TO THE SCHEME
  5. DOXORUBICIN [Suspect]
     Active Substance: DOXORUBICIN
     Dosage: ACCORDING TO THE SCHEME
  6. ETOPOSID [Suspect]
     Active Substance: ETOPOSIDE
     Dosage: ACCORDING TO THE SCHEME
  7. CYCLOPHOSPHAMID [Suspect]
     Active Substance: CYCLOPHOSPHAMIDE
     Dosage: ACCORDING TO THE SCHEME
  8. LORAZEPAM. [Concomitant]
     Active Substance: LORAZEPAM
     Dosage: 1 MG, REQUIREMENT
     Route: 048
  9. ONDANSETRON [Concomitant]
     Active Substance: ONDANSETRON
     Dosage: 8 MG, AS NEEDED
     Route: 048
  10. ENOXAPARIN [Concomitant]
     Active Substance: ENOXAPARIN
     Dosage: 40 MILLIGRAM DAILY; PRE?FILLED SYRINGES , 0?0?1?0
     Route: 058
  11. PROCARBAZIN [Suspect]
     Active Substance: PROCARBAZINE
     Dosage: ACCORDING TO THE SCHEME
  12. METOCLOPRAMID [Concomitant]
     Active Substance: METOCLOPRAMIDE
     Dosage: AMPOULES , 10 MG, AS NEEDED
     Route: 042

REACTIONS (5)
  - Malaise [Recovering/Resolving]
  - Chills [Recovering/Resolving]
  - Decreased appetite [Recovering/Resolving]
  - Pyrexia [Recovering/Resolving]
  - Headache [Recovering/Resolving]
